FAERS Safety Report 11938562 (Version 1)
Quarter: 2016Q1

REPORT INFORMATION
  Report Type: Spontaneous
  Country: US (occurrence: None)
  Receive Date: 20160120
  Receipt Date: 20160120
  Transmission Date: 20160526
  Serious: Yes (Hospitalization, Disabling)
  Sender: FDA-Public Use
  Company Number: None

PATIENT
  Age: 43 Year
  Sex: Male

DRUGS (1)
  1. THORAZINE [Suspect]
     Active Substance: CHLORPROMAZINE
     Indication: HICCUPS
     Dosage: 25MG?2 DOSES GIVEN ?INTRAVENOUS
     Route: 042
     Dates: start: 20151128, end: 20151128

REACTIONS (1)
  - Priapism [None]

NARRATIVE: CASE EVENT DATE: 20151128
